FAERS Safety Report 5752172-4 (Version None)
Quarter: 2008Q2

REPORT INFORMATION
  Report Type: 
  Country: None (occurrence: None)
  Receive Date: 20080529
  Receipt Date: 20080523
  Transmission Date: 20081010
  Serious: Yes (Other)
  Sender: FDA-Public Use
  Company Number: US-JNJFOC-20071200969

PATIENT
  Sex: Male

DRUGS (11)
  1. PROPULSID [Suspect]
     Indication: OBSTRUCTION
     Dosage: PERMANENT STOP
     Route: 048
  2. PROPULSID [Suspect]
     Indication: GASTROINTESTINAL DISORDER
     Route: 048
  3. SINEMET [Concomitant]
     Indication: PARKINSON'S DISEASE
     Dosage: 25/100 TWICE DAILY, STARTED PRE-TRIAL
     Route: 048
  4. SINEMET CR [Concomitant]
     Indication: PARKINSON'S DISEASE
     Dosage: 50/200 ONCE DAILY, STARTED PRE-TRIAL
     Route: 065
  5. COMTAN [Concomitant]
     Indication: PARKINSON'S DISEASE
     Dosage: STARTED PRE-TRIAL
     Route: 065
  6. FLURINEF [Concomitant]
     Indication: ORTHOSTATIC HYPOTENSION
     Dosage: STARTED PRE-TRIAL
     Route: 065
  7. PRILOSEC [Concomitant]
     Indication: GASTROOESOPHAGEAL REFLUX DISEASE
     Dosage: STARTED PRE-TRIAL
     Route: 065
  8. PROSCAR [Concomitant]
     Indication: BENIGN PROSTATIC HYPERPLASIA
     Dosage: STARTED PRE-TRIAL
     Route: 065
  9. AMANTADINE HCL [Concomitant]
     Indication: PARKINSON'S DISEASE
     Route: 065
  10. MIRAPEX [Concomitant]
     Indication: PARKINSON'S DISEASE
     Route: 065
  11. LACTULOSE [Concomitant]
     Indication: CONSTIPATION
     Route: 065

REACTIONS (1)
  - ELECTROCARDIOGRAM QT PROLONGED [None]
